FAERS Safety Report 20834418 (Version 1)
Quarter: 2022Q2

REPORT INFORMATION
  Report Type: Spontaneous
  Country: US (occurrence: US)
  Receive Date: 20220516
  Receipt Date: 20220516
  Transmission Date: 20220721
  Serious: No
  Sender: FDA-Public Use
  Company Number: US-TEVA-2022-US-2034505

PATIENT
  Sex: Male

DRUGS (5)
  1. VALSARTAN [Suspect]
     Active Substance: VALSARTAN
     Route: 065
  2. LENVIMA [Suspect]
     Active Substance: LENVATINIB
     Indication: Thyroid cancer
     Dosage: 10 MILLIGRAM DAILY;
     Route: 065
     Dates: start: 20210610
  3. LENVIMA [Suspect]
     Active Substance: LENVATINIB
     Dosage: 8 MILLIGRAM DAILY;
     Route: 065
     Dates: start: 202112
  4. LENVIMA [Suspect]
     Active Substance: LENVATINIB
     Dosage: 4 MILLIGRAM DAILY;
     Route: 048
     Dates: start: 202204
  5. CARVEDILOL [Suspect]
     Active Substance: CARVEDILOL
     Route: 065

REACTIONS (8)
  - Hepatic enzyme increased [Not Recovered/Not Resolved]
  - Blood pressure increased [Not Recovered/Not Resolved]
  - Dizziness [Not Recovered/Not Resolved]
  - Intraocular pressure test abnormal [Not Recovered/Not Resolved]
  - Weight increased [Unknown]
  - Scan abnormal [Unknown]
  - Diarrhoea [Unknown]
  - Feeling abnormal [Not Recovered/Not Resolved]

NARRATIVE: CASE EVENT DATE: 20220401
